FAERS Safety Report 15589325 (Version 2)
Quarter: 2018Q4

REPORT INFORMATION
  Report Type: Spontaneous
  Country: US (occurrence: US)
  Receive Date: 20181106
  Receipt Date: 20181114
  Transmission Date: 20190205
  Serious: Yes (Other)
  Sender: FDA-Public Use
  Company Number: US-TEVA-2018-US-972695

PATIENT
  Age: 36 Year
  Sex: Female

DRUGS (4)
  1. FISH OIL [Suspect]
     Active Substance: FISH OIL
     Indication: HYPERTRIGLYCERIDAEMIA
     Route: 065
  2. LEUPROLIDE ACETATE. [Concomitant]
     Active Substance: LEUPROLIDE ACETATE
     Dosage: 20 UNITS
     Route: 065
  3. ESTRADIOL. [Suspect]
     Active Substance: ESTRADIOL
     Dosage: 4 MILLIGRAM DAILY;
     Route: 048
  4. PROGESTERONE. [Concomitant]
     Active Substance: PROGESTERONE
     Dosage: 100 MILLIGRAM DAILY;
     Route: 030

REACTIONS (5)
  - Condition aggravated [Recovered/Resolved]
  - Xanthoma [Recovering/Resolving]
  - Hypertriglyceridaemia [Recovered/Resolved]
  - Xanthoma [Recovered/Resolved]
  - Drug ineffective [Unknown]
